FAERS Safety Report 13497334 (Version 1)
Quarter: 2017Q2

REPORT INFORMATION
  Report Type: Spontaneous
  Country: US (occurrence: US)
  Receive Date: 20170428
  Receipt Date: 20170428
  Transmission Date: 20170830
  Serious: Yes (Hospitalization)
  Sender: FDA-Public Use
  Company Number: None

PATIENT
  Age: 66 Year
  Sex: Female

DRUGS (9)
  1. MULTI-VITAMIN [Concomitant]
     Active Substance: .ALPHA.-TOCOPHEROL ACETATE, DL-\ASCORBIC ACID\CYANOCOBALAMIN\FLUORIDE ION\FOLIC ACID\NIACIN\PYRIDOXINE\RIBOFLAVIN\THIAMINE\VITAMIN A\VITAMIN D
  2. IBUPROFEN. [Concomitant]
     Active Substance: IBUPROFEN
  3. LORATADINE. [Concomitant]
     Active Substance: LORATADINE
  4. RANITIDINE. [Concomitant]
     Active Substance: RANITIDINE
  5. PANTOPRAZOLE [Concomitant]
     Active Substance: PANTOPRAZOLE
  6. VIREAD [Suspect]
     Active Substance: TENOFOVIR DISOPROXIL FUMARATE
     Indication: HEPATITIS B
     Dosage: 1 TABLET DAILY ORAL
     Route: 048
     Dates: start: 20160208
  7. FISH OIL [Concomitant]
     Active Substance: FISH OIL
  8. GLUCOSAMINE [Concomitant]
     Active Substance: GLUCOSAMINE
  9. DICLOFENAC [Concomitant]
     Active Substance: DICLOFENAC

REACTIONS (2)
  - Anaemia [None]
  - Full blood count decreased [None]
